FAERS Safety Report 11346921 (Version 2)
Quarter: 2015Q3

REPORT INFORMATION
  Report Type: Spontaneous
  Country: US (occurrence: US)
  Receive Date: 20150803
  Receipt Date: 20150803
  Transmission Date: 20151125
  Serious: No
  Sender: FDA-Public Use
  Company Number: US-ELI_LILLY_AND_COMPANY-US201102001063

PATIENT
  Age: 41 Year
  Sex: Male

DRUGS (2)
  1. ZYPREXA [Suspect]
     Active Substance: OLANZAPINE
     Indication: BIPOLAR DISORDER
     Dosage: 10 MG, DAILY (1/D)
     Dates: start: 2005
  2. STRATTERA [Suspect]
     Active Substance: ATOMOXETINE HYDROCHLORIDE
     Indication: DEPRESSION
     Dosage: UNK, UNK
     Dates: start: 2005

REACTIONS (7)
  - Memory impairment [Unknown]
  - Intentional product misuse [Unknown]
  - Psychomotor hyperactivity [Unknown]
  - Off label use [Recovered/Resolved]
  - Mood altered [Unknown]
  - Anger [Unknown]
  - Feeling abnormal [Unknown]
